FAERS Safety Report 6421829-4 (Version None)
Quarter: 2009Q4

REPORT INFORMATION
  Report Type: 
  Country: None (occurrence: None)
  Receive Date: 20091030
  Receipt Date: 20090831
  Transmission Date: 20100525
  Serious: Yes (Other)
  Sender: FDA-Public Use
  Company Number: B0600484A

PATIENT
  Age: 59 Year
  Sex: Male

DRUGS (2)
  1. DIGOXIN [Suspect]
  2. SPIRONOLACTONE [Suspect]

REACTIONS (11)
  - BLOOD OESTROGEN INCREASED [None]
  - BLOOD PROLACTIN INCREASED [None]
  - CONDITION AGGRAVATED [None]
  - DEPRESSION [None]
  - ERECTILE DYSFUNCTION [None]
  - GENDER IDENTITY DISORDER [None]
  - GRIEF REACTION [None]
  - GYNAECOMASTIA [None]
  - OEDEMA [None]
  - SUICIDAL IDEATION [None]
  - WEIGHT INCREASED [None]
